FAERS Safety Report 12527570 (Version 1)
Quarter: 2016Q3

REPORT INFORMATION
  Report Type: Spontaneous
  Country: JP (occurrence: JP)
  Receive Date: 20160705
  Receipt Date: 20160705
  Transmission Date: 20161109
  Serious: Yes (Hospitalization, Other)
  Sender: FDA-Public Use
  Company Number: JP-ROCHE-1780223

PATIENT
  Age: 74 Year
  Sex: Female
  Weight: 38 kg

DRUGS (5)
  1. UREPEARL [Concomitant]
     Active Substance: UREA
     Indication: PROPHYLAXIS
     Dosage: SINGLE USE
     Route: 003
  2. XELODA [Suspect]
     Active Substance: CAPECITABINE
     Indication: BREAST CANCER
     Route: 048
     Dates: start: 20160502, end: 20160509
  3. ZOLEDRONIC ACID [Concomitant]
     Active Substance: ZOLEDRONIC ACID
     Indication: BREAST CANCER
     Dosage: SINGLE DOSE ADMINISTRATION
     Route: 041
     Dates: start: 20160502, end: 20160502
  4. SODIUM FERROUS CITRATE [Concomitant]
     Active Substance: SODIUM FERROUS CITRATE
     Indication: ANAEMIA
     Route: 048
     Dates: start: 20160414, end: 20160509
  5. CALONAL [Concomitant]
     Active Substance: ACETAMINOPHEN
     Indication: PROPHYLAXIS
     Dosage: TAKEN AS NEEDED
     Route: 048

REACTIONS (11)
  - Hypoalbuminaemia [Unknown]
  - Muscular weakness [Unknown]
  - Dehydration [Unknown]
  - Infection [Unknown]
  - Acute kidney injury [Unknown]
  - Pneumothorax [Recovered/Resolved]
  - Disseminated intravascular coagulation [Unknown]
  - Diarrhoea [Recovering/Resolving]
  - Circulatory collapse [Unknown]
  - Hyperglycaemia [Unknown]
  - Hepatic function abnormal [Unknown]

NARRATIVE: CASE EVENT DATE: 20160503
